FAERS Safety Report 6715848-8 (Version None)
Quarter: 2010Q2

REPORT INFORMATION
  Report Type: 
  Country: None (occurrence: None)
  Receive Date: 20100507
  Receipt Date: 20100429
  Transmission Date: 20101027
  Serious: Yes (Hospitalization)
  Sender: FDA-Public Use
  Company Number: US-JNJFOC-20100500305

PATIENT
  Sex: Female
  Weight: 79.38 kg

DRUGS (8)
  1. DURAGESIC-100 [Suspect]
     Indication: PAIN
     Route: 062
  2. DURAGESIC-100 [Suspect]
     Route: 062
  3. DURAGESIC-100 [Suspect]
     Indication: PROCEDURAL PAIN
     Route: 062
  4. DURAGESIC-100 [Suspect]
     Route: 062
  5. SANDOZ FENTANYL TRANSDRMAL SYSTEM [Suspect]
     Indication: PAIN
     Route: 062
  6. FENTANYL CITRATE [Suspect]
     Indication: PAIN
     Route: 062
  7. FENTANYL CITRATE [Suspect]
     Route: 062
  8. NORCO [Concomitant]
     Indication: BREAKTHROUGH PAIN
     Dosage: AS NEEDED
     Route: 048

REACTIONS (11)
  - ABASIA [None]
  - BODY HEIGHT DECREASED [None]
  - DRUG PRESCRIBING ERROR [None]
  - FIBROMYALGIA [None]
  - GALLBLADDER DISORDER [None]
  - HORMONE LEVEL ABNORMAL [None]
  - NEUROPATHY PERIPHERAL [None]
  - OFF LABEL USE [None]
  - OPERATIVE HAEMORRHAGE [None]
  - RESTLESS LEGS SYNDROME [None]
  - UTERINE DISORDER [None]
